FAERS Safety Report 5309734-8 (Version None)
Quarter: 2007Q2

REPORT INFORMATION
  Report Type: 
  Country: None (occurrence: None)
  Receive Date: 20070427
  Receipt Date: 20070419
  Transmission Date: 20071010
  Serious: Yes (Hospitalization, Other)
  Sender: FDA-Public Use
  Company Number: GB-AVENTIS-200712392GDDC

PATIENT
  Age: 41 Year
  Sex: Female

DRUGS (2)
  1. FLAGYL [Suspect]
     Indication: PELVIC INFLAMMATORY DISEASE
     Route: 048
     Dates: start: 20070313, end: 20070315
  2. CYCLIZINE [Concomitant]
     Indication: MALAISE
     Route: 048
     Dates: start: 20070309, end: 20070315

REACTIONS (2)
  - HALLUCINATION, AUDITORY [None]
  - HALLUCINATION, VISUAL [None]
